FAERS Safety Report 9013415 (Version 1)
Quarter: 2013Q1

REPORT INFORMATION
  Report Type: Spontaneous
  Country: US (occurrence: None)
  Receive Date: 20130107
  Receipt Date: 20130107
  Transmission Date: 20140127
  Serious: Yes (Hospitalization)
  Sender: FDA-Public Use
  Company Number: None

PATIENT
  Age: 56 Year
  Sex: Male
  Weight: 97.7 kg

DRUGS (6)
  1. ACTERMA 5% TWO INFUSION DOSES [Suspect]
     Route: 042
     Dates: start: 20120927
  2. CELLCEPT [Concomitant]
  3. PROGRAF [Concomitant]
  4. ALLOPURINOL [Concomitant]
  5. SOMA [Concomitant]
  6. SENSIPAR [Concomitant]

REACTIONS (4)
  - Depressed level of consciousness [None]
  - Myoclonus [None]
  - Hyperkalaemia [None]
  - Status epilepticus [None]
